FAERS Safety Report 17625531 (Version 1)
Quarter: 2020Q2

REPORT INFORMATION
  Report Type: Spontaneous
  Country: IT (occurrence: IT)
  Receive Date: 20200404
  Receipt Date: 20200404
  Transmission Date: 20200713
  Serious: Yes (Life-Threatening)
  Sender: FDA-Public Use
  Company Number: IT-HIKMA PHARMACEUTICALS USA INC.-IT-H14001-20-50955

PATIENT
  Age: 5 Month
  Sex: Male

DRUGS (1)
  1. ROCURONIUM [Suspect]
     Active Substance: ROCURONIUM BROMIDE
     Indication: PRODUCT USED FOR UNKNOWN INDICATION
     Route: 042
     Dates: start: 20200121, end: 20200121

REACTIONS (2)
  - Drug ineffective [Recovered/Resolved]
  - Premature recovery from anaesthesia [Recovered/Resolved]

NARRATIVE: CASE EVENT DATE: 20200121
